FAERS Safety Report 8359536-3 (Version None)
Quarter: 2012Q2

REPORT INFORMATION
  Report Type: 
  Country: None (occurrence: None)
  Receive Date: 20120515
  Receipt Date: 20120511
  Transmission Date: 20120825
  Serious: Yes (Hospitalization)
  Sender: FDA-Public Use
  Company Number: CO-PFIZER INC-2012054249

PATIENT
  Sex: Male

DRUGS (6)
  1. PRAZOSIN [Concomitant]
  2. TIMOLOL [Concomitant]
  3. LOSARTAN [Concomitant]
  4. SUTENT [Suspect]
     Indication: LUNG NEOPLASM MALIGNANT
     Dosage: 50 MG, 1X/DAY
     Route: 048
     Dates: start: 20120204, end: 20120222
  5. METOPROLOL [Concomitant]
  6. INSULIN [Concomitant]

REACTIONS (2)
  - LACERATION [None]
  - GENITAL INJURY [None]
